FAERS Safety Report 5833269-7 (Version None)
Quarter: 2008Q3

REPORT INFORMATION
  Report Type: 
  Country: None (occurrence: None)
  Receive Date: 20080722
  Receipt Date: 20070529
  Transmission Date: 20090109
  Serious: Yes (Hospitalization)
  Sender: FDA-Public Use
  Company Number: 2007BI007203

PATIENT
  Age: 47 Year
  Sex: Female
  Weight: 81.6475 kg

DRUGS (1)
  1. AVONEX [Suspect]
     Indication: MULTIPLE SCLEROSIS
     Dosage: 30 UG;QW;IM
     Route: 030
     Dates: start: 20031018

REACTIONS (11)
  - ANXIETY [None]
  - BALANCE DISORDER [None]
  - DEPRESSION [None]
  - EXCORIATION [None]
  - FALL [None]
  - FEELING HOT [None]
  - GASTRIC DISORDER [None]
  - LIGAMENT INJURY [None]
  - MULTIPLE SCLEROSIS RELAPSE [None]
  - SLEEP DISORDER [None]
  - STRESS [None]
